FAERS Safety Report 16962999 (Version 2)
Quarter: 2020Q3

REPORT INFORMATION
  Report Type: Spontaneous
  Country: FR (occurrence: FR)
  Receive Date: 20191025
  Receipt Date: 20200825
  Transmission Date: 20201102
  Serious: Yes (Other)
  Sender: FDA-Public Use
  Company Number: FR-BRISTOL-MYERS SQUIBB COMPANY-BMS-2019-100563

PATIENT
  Age: 67 Year
  Sex: Female
  Weight: 70 kg

DRUGS (2)
  1. YERVOY [Suspect]
     Active Substance: IPILIMUMAB
     Indication: METASTATIC MALIGNANT MELANOMA
     Dosage: 200 MILLIGRAM, Q3WK
     Route: 042
     Dates: start: 20190703, end: 20190904
  2. OPDIVO [Suspect]
     Active Substance: NIVOLUMAB
     Indication: METASTATIC MALIGNANT MELANOMA
     Dosage: 68 MILLIGRAM, Q3WK
     Route: 042
     Dates: start: 20190703, end: 20190904

REACTIONS (11)
  - Rash papular [Recovered/Resolved]
  - Colitis ischaemic [Not Recovered/Not Resolved]
  - Prescribed underdose [Unknown]
  - Tinnitus [Recovered/Resolved]
  - Pruritus [Recovered/Resolved]
  - Deafness [Recovered/Resolved]
  - Cholestasis [Recovered/Resolved]
  - Oral mucosa erosion [Recovered/Resolved]
  - Rash maculo-papular [Recovered/Resolved]
  - Cell death [Recovered/Resolved]
  - Eczema [Recovered/Resolved]

NARRATIVE: CASE EVENT DATE: 20190709
